FAERS Safety Report 9098662 (Version 1)
Quarter: 2013Q1

REPORT INFORMATION
  Report Type: Spontaneous
  Country: IT (occurrence: IT)
  Receive Date: 20130213
  Receipt Date: 20130213
  Transmission Date: 20140127
  Serious: Yes (Other)
  Sender: FDA-Public Use
  Company Number: IT-TEVA-385327ISR

PATIENT
  Age: 54 Year
  Sex: Male

DRUGS (12)
  1. FLUOROURACILE [Suspect]
     Dosage: 704 MG CYCLICAL
     Route: 042
     Dates: start: 20120905
  2. FLUOROURACILE [Suspect]
     Dosage: 1056 MG CYCLICAL
     Route: 042
     Dates: start: 20120905
  3. IRINOTECAN [Suspect]
     Dosage: 316.8 MG CYCLICAL
     Route: 042
     Dates: start: 20120905
  4. AVASTIN [Suspect]
     Dosage: 350 MG CYCLICAL
     Route: 042
     Dates: start: 20120905
  5. ONDANSETRONE HIKMA [Concomitant]
     Dosage: 8 MILLIGRAM DAILY;
     Route: 042
     Dates: start: 20120905
  6. CALCIO LEVOFOLONATO [Concomitant]
     Dosage: 176 MILLIGRAM DAILY;
     Route: 042
     Dates: start: 20120905
  7. RANIDIL [Concomitant]
     Dosage: 50 MILLIGRAM DAILY;
     Route: 042
     Dates: start: 20120905
  8. SOLDESAM [Concomitant]
     Dosage: 8 MILLIGRAM DAILY;
     Route: 042
     Dates: start: 20120905
  9. PRITOR [Concomitant]
     Dosage: 40 MILLIGRAM DAILY;
     Route: 048
  10. PRITOR [Concomitant]
     Dosage: 80 MILLIGRAM DAILY;
     Route: 048
  11. VELAMOX [Concomitant]
     Dosage: 2 GRAM DAILY;
     Route: 048
  12. NIMESULIDE DOC GENERIC [Concomitant]
     Dosage: 100 MILLIGRAM DAILY;
     Route: 048

REACTIONS (8)
  - Constipation [Recovering/Resolving]
  - Nausea [Recovering/Resolving]
  - Vomiting [Recovering/Resolving]
  - Salivary hypersecretion [Recovering/Resolving]
  - Stomatitis [Recovering/Resolving]
  - Lacrimation increased [Recovering/Resolving]
  - Eye irritation [Recovering/Resolving]
  - Erectile dysfunction [Recovering/Resolving]
